FAERS Safety Report 13759657 (Version 1)
Quarter: 2017Q3

REPORT INFORMATION
  Report Type: Spontaneous
  Country: JP (occurrence: JP)
  Receive Date: 20170717
  Receipt Date: 20170717
  Transmission Date: 20171127
  Serious: Yes (Other)
  Sender: FDA-Public Use
  Company Number: JP-PFIZER INC-2017213289

PATIENT
  Age: 70 Year

DRUGS (2)
  1. ZYVOX [Suspect]
     Active Substance: LINEZOLID
     Dosage: 1200 MG, DAILY
     Route: 041
  2. ZYVOX [Suspect]
     Active Substance: LINEZOLID
     Dosage: 1200 MG, DAILY
     Route: 048

REACTIONS (2)
  - Product use issue [Unknown]
  - Nephritis [Not Recovered/Not Resolved]
